FAERS Safety Report 4837406-2 (Version None)
Quarter: 2005Q4

REPORT INFORMATION
  Report Type: 
  Country: None (occurrence: None)
  Receive Date: 20051123
  Receipt Date: 20051123
  Transmission Date: 20060501
  Serious: Yes (Life-Threatening)
  Sender: FDA-Public Use
  Company Number: None

PATIENT
  Age: 79 Year
  Sex: Male
  Weight: 62 kg

DRUGS (5)
  1. AMIODARONE [Suspect]
     Indication: ATRIAL FIBRILLATION
     Dosage: 200 MG IV X 1
     Route: 042
     Dates: start: 20050617
  2. FUROSEMIDE [Concomitant]
  3. RANITIDINE [Concomitant]
  4. ACETAMINOPHEN [Concomitant]
  5. INSULIN [Concomitant]

REACTIONS (4)
  - BRADYCARDIA [None]
  - TORSADE DE POINTES [None]
  - VENTRICULAR FIBRILLATION [None]
  - VENTRICULAR TACHYCARDIA [None]
